FAERS Safety Report 25964281 (Version 1)
Quarter: 2025Q4

REPORT INFORMATION
  Report Type: Spontaneous
  Country: CN (occurrence: CN)
  Receive Date: 20251027
  Receipt Date: 20251027
  Transmission Date: 20260117
  Serious: Yes (Other)
  Sender: JOHNSON AND JOHNSON
  Company Number: CN-JNJFOC-20251024626

PATIENT
  Age: 21 Year
  Sex: Male
  Weight: 89.6 kg

DRUGS (1)
  1. RISPERIDONE [Suspect]
     Active Substance: RISPERIDONE
     Indication: Mental disorder
     Route: 048
     Dates: start: 20250922, end: 20251008

REACTIONS (3)
  - Respiratory distress [Recovered/Resolved]
  - Feeling jittery [Recovered/Resolved]
  - Initial insomnia [Recovered/Resolved]

NARRATIVE: CASE EVENT DATE: 20251008
